FAERS Safety Report 11379624 (Version 1)
Quarter: 2015Q3

REPORT INFORMATION
  Report Type: Spontaneous
  Country: US (occurrence: US)
  Receive Date: 20150814
  Receipt Date: 20150814
  Transmission Date: 20151125
  Serious: No
  Sender: FDA-Public Use
  Company Number: US-009507513-1508USA002061

PATIENT
  Age: 23 Year
  Sex: Female
  Weight: 83.9 kg

DRUGS (1)
  1. NEXPLANON [Suspect]
     Active Substance: ETONOGESTREL
     Indication: CONTRACEPTION
     Dosage: 1 ROD 3 YEARS, LEFT ARM IMPLANT
     Route: 059
     Dates: start: 20140328

REACTIONS (1)
  - Lactation disorder [Unknown]

NARRATIVE: CASE EVENT DATE: 20150802
